FAERS Safety Report 4455970-2 (Version None)
Quarter: 2004Q3

REPORT INFORMATION
  Report Type: 
  Country: None (occurrence: None)
  Receive Date: 20040922
  Receipt Date: 20040317
  Transmission Date: 20050211
  Serious: Yes (Life-Threatening, Hospitalization)
  Sender: FDA-Public Use
  Company Number: JP-GLAXOSMITHKLINE-B0326971A

PATIENT
  Age: 20 Year
  Sex: Male
  Weight: 50 kg

DRUGS (7)
  1. SAWACILLIN [Suspect]
     Indication: UPPER RESPIRATORY TRACT INFLAMMATION
     Route: 048
     Dates: start: 20040312, end: 20040312
  2. CEFDINIR [Suspect]
     Indication: UPPER RESPIRATORY TRACT INFLAMMATION
     Dosage: 300MG PER DAY
     Route: 048
     Dates: start: 20040310, end: 20040312
  3. PL [Suspect]
     Indication: NASOPHARYNGITIS
     Dosage: 3G PER DAY
     Route: 048
     Dates: start: 20040312, end: 20040312
  4. VOLTAREN [Suspect]
     Indication: PYREXIA
     Dosage: 50MG PER DAY
     Route: 054
     Dates: start: 20040312, end: 20040312
  5. LOXONIN [Suspect]
     Indication: PYREXIA
     Dosage: 180MG PER DAY
     Route: 048
     Dates: start: 20040310, end: 20040312
  6. MUCOSTA [Concomitant]
     Dates: start: 20040310, end: 20040312
  7. SELBEX [Concomitant]
     Dates: start: 20040312, end: 20040312

REACTIONS (12)
  - ACUTE RESPIRATORY FAILURE [None]
  - ALANINE AMINOTRANSFERASE INCREASED [None]
  - ASPARTATE AMINOTRANSFERASE INCREASED [None]
  - BLOOD ALKALINE PHOSPHATASE INCREASED [None]
  - BLOOD LACTATE DEHYDROGENASE DECREASED [None]
  - BLOOD PRESSURE SYSTOLIC DECREASED [None]
  - BLOOD SODIUM DECREASED [None]
  - CYANOSIS [None]
  - GAMMA-GLUTAMYLTRANSFERASE INCREASED [None]
  - LUNG INFILTRATION [None]
  - PLATELET COUNT DECREASED [None]
  - VIRAL INFECTION [None]
